FAERS Safety Report 25684026 (Version 1)
Quarter: 2025Q3

REPORT INFORMATION
  Report Type: 
  Country: CN (occurrence: CN)
  Receive Date: 20250815
  Receipt Date: 20250815
  Transmission Date: 20251020
  Serious: Yes (Life-Threatening, Hospitalization)
  Sender: JIANGSU HANSOH PHARMACEUTICAL GROUP CO., LTD.
  Company Number: CN-Hansoh-20252190014546

PATIENT
  Age: 56 Year
  Sex: Male
  Weight: 50 kg

DRUGS (4)
  1. GEMCITABINE HYDROCHLORIDE [Suspect]
     Active Substance: GEMCITABINE HYDROCHLORIDE
     Indication: Angiocentric lymphoma
     Dosage: 1.77G,SINGLE DOSE
     Route: 041
     Dates: start: 20250707, end: 20250707
  2. GEMCITABINE HYDROCHLORIDE [Suspect]
     Active Substance: GEMCITABINE HYDROCHLORIDE
     Dosage: 1.77G,SINGLE DOSE
     Route: 041
     Dates: start: 20250714, end: 20250714
  3. OXALIPLATIN [Suspect]
     Active Substance: OXALIPLATIN
     Indication: Angiocentric lymphoma
     Dosage: 230MG,SINGLE DOSE
     Route: 041
     Dates: start: 20250707, end: 20250707
  4. OXALIPLATIN [Suspect]
     Active Substance: OXALIPLATIN
     Dosage: 230MG,SINGLE DOSE
     Route: 041
     Dates: start: 20250714, end: 20250714

REACTIONS (2)
  - Myelosuppression [Recovering/Resolving]
  - Off label use [Unknown]

NARRATIVE: CASE EVENT DATE: 20250707
